FAERS Safety Report 8102897-0 (Version None)
Quarter: 2012Q1

REPORT INFORMATION
  Report Type: 
  Country: None (occurrence: None)
  Receive Date: 20120201
  Receipt Date: 20120123
  Transmission Date: 20120608
  Serious: Yes (Other)
  Sender: FDA-Public Use
  Company Number: ES-BAYER-2011-006188

PATIENT
  Age: 71 Year
  Sex: Male

DRUGS (10)
  1. FUROSEMIDA [Concomitant]
  2. FUROSEMIDE [Concomitant]
     Indication: HYPERTENSION
     Route: 048
     Dates: start: 20100714, end: 20100919
  3. PANTOPRAZOLE [Concomitant]
     Dates: start: 20100806
  4. INSPRA [Concomitant]
     Indication: HYPERTENSION
     Route: 048
     Dates: start: 20100806, end: 20100919
  5. CARVEDILOL [Concomitant]
     Indication: CORONARY ARTERY DISEASE
     Dates: start: 20100907
  6. ATORVASTATIN [Concomitant]
     Indication: DYSLIPIDAEMIA
     Dates: start: 20100714
  7. KETOISDIN [Concomitant]
     Route: 061
     Dates: start: 20100824
  8. ENALAPRIL MALEATE [Concomitant]
     Indication: HYPERTENSION
     Route: 048
     Dates: start: 20100807, end: 20100919
  9. METFORMIN HCL [Concomitant]
     Indication: DIABETES MELLITUS
     Route: 048
     Dates: start: 20100806, end: 20100919
  10. ASPIRIN [Suspect]
     Indication: CARDIOVASCULAR EVENT PROPHYLAXIS
     Dosage: 100 MG, HS
     Route: 048
     Dates: start: 20100714, end: 20100919

REACTIONS (2)
  - RENAL TUBULAR NECROSIS [None]
  - LACTIC ACIDOSIS [None]
